FAERS Safety Report 6832338-2 (Version None)
Quarter: 2010Q3

REPORT INFORMATION
  Report Type: 
  Country: None (occurrence: None)
  Receive Date: 20100712
  Receipt Date: 20100702
  Transmission Date: 20110219
  Serious: Yes (Other)
  Sender: FDA-Public Use
  Company Number: US-PFIZER INC-2010070201

PATIENT
  Sex: Female
  Weight: 97.506 kg

DRUGS (15)
  1. LIPITOR [Suspect]
     Indication: BLOOD CHOLESTEROL INCREASED
     Dosage: 80 MG, 1X/DAY
     Route: 048
     Dates: start: 20100529
  2. CRESTOR [Suspect]
     Indication: BLOOD CHOLESTEROL INCREASED
     Dosage: 10 MG, 1X/DAY
     Route: 048
     Dates: start: 20100501, end: 20100525
  3. ACETYLSALICYLIC ACID [Concomitant]
     Indication: ISCHAEMIC HEART DISEASE PROPHYLAXIS
     Dosage: 81 MG, 1X/DAY
     Route: 048
  4. GLUCOSAMINE HYDROCHLORIDE/CHONDROITIN SULFATE [Concomitant]
     Indication: OSTEOARTHRITIS
     Dosage: UNK MG, 1X/DAY
     Route: 048
  5. ASTELIN [Concomitant]
     Indication: NASAL CONGESTION
     Dosage: UNK
     Route: 045
  6. RISPERIDONE [Concomitant]
     Indication: SCHIZOAFFECTIVE DISORDER
     Dosage: 2 MG, 1X/DAY
     Route: 048
  7. CLONAZEPAM [Concomitant]
     Indication: SCHIZOAFFECTIVE DISORDER
     Dosage: UNK
     Route: 048
  8. CARBAMAZEPINE [Concomitant]
     Indication: SCHIZOAFFECTIVE DISORDER
     Dosage: 200 MG, 3X/DAY
     Route: 048
  9. CYCLOBENZAPRINE [Concomitant]
     Indication: SCHIZOAFFECTIVE DISORDER
     Dosage: 1 MG, 1X/DAY
     Route: 048
  10. ENALAPRIL [Concomitant]
     Indication: HYPERTENSION
     Dosage: 10 MG, 2X/DAY
     Route: 048
  11. HYDROCHLOROTHIAZIDE [Concomitant]
     Indication: HYPERTENSION
     Dosage: 12.5 MG, 1X/DAY
     Route: 048
  12. ATENOLOL [Concomitant]
     Indication: HYPERTENSION
     Dosage: 50 MG, 1X/DAY
     Route: 048
  13. LEVOTHYROXINE SODIUM [Concomitant]
     Indication: THYROID DISORDER
     Dosage: 125 UG, 1X/DAY
     Route: 048
  14. CALCIUM [Concomitant]
     Indication: OSTEOPOROSIS
     Dosage: 600 MG, 1X/DAY
     Route: 048
  15. ONE-A-DAY [Concomitant]

REACTIONS (7)
  - ABDOMINAL DISCOMFORT [None]
  - BLOOD PRESSURE INCREASED [None]
  - DIARRHOEA [None]
  - DYSPEPSIA [None]
  - MYALGIA [None]
  - NAUSEA [None]
  - PARAESTHESIA [None]
